FAERS Safety Report 21174970 (Version 4)
Quarter: 2022Q4

REPORT INFORMATION
  Report Type: Spontaneous
  Country: BR (occurrence: BR)
  Receive Date: 20220805
  Receipt Date: 20221020
  Transmission Date: 20230112
  Serious: Yes (Other)
  Sender: FDA-Public Use
  Company Number: BR-TAKEDA-2022TUS048795

PATIENT

DRUGS (1)
  1. LISDEXAMFETAMINE DIMESYLATE [Suspect]
     Active Substance: LISDEXAMFETAMINE DIMESYLATE
     Indication: Product used for unknown indication
     Dosage: UNK
     Route: 065

REACTIONS (8)
  - Adverse event [Unknown]
  - Thirst [Unknown]
  - Fasting [Unknown]
  - Feeling abnormal [Unknown]
  - Unevaluable event [Unknown]
  - Decreased appetite [Unknown]
  - Dry mouth [Unknown]
  - Agitation [Unknown]
